FAERS Safety Report 7402314-X (Version None)
Quarter: 2011Q1

REPORT INFORMATION
  Report Type: 
  Country: None (occurrence: None)
  Receive Date: 20110331
  Receipt Date: 20110318
  Transmission Date: 20110831
  Serious: Yes (Hospitalization)
  Sender: FDA-Public Use
  Company Number: VAL_00549_2011

PATIENT
  Sex: Female

DRUGS (7)
  1. ARAVA [Concomitant]
  2. CALCITRIOL [Suspect]
     Indication: OSTEOPOROSIS
     Dosage: (10 MG)
  3. RAMIPRIL [Concomitant]
  4. EUTHYROX [Concomitant]
  5. ETANERCEPT (ETANERCEPT) [Suspect]
     Indication: PSORIASIS
     Dosage: (50 MG 2X/WEEK), (50 MG 1X/WEEK)
     Dates: start: 20101004
  6. ETANERCEPT (ETANERCEPT) [Suspect]
     Indication: PSORIASIS
     Dosage: (50 MG 2X/WEEK), (50 MG 1X/WEEK)
     Dates: start: 20080417, end: 20091001
  7. ETANERCEPT (ETANERCEPT) [Suspect]
     Indication: PSORIASIS
     Dosage: (50 MG 2X/WEEK), (50 MG 1X/WEEK)
     Dates: start: 20091028

REACTIONS (4)
  - VITAMIN D INCREASED [None]
  - WEIGHT DECREASED [None]
  - OVERDOSE [None]
  - RENAL FAILURE [None]
